FAERS Safety Report 7784543-9 (Version None)
Quarter: 2011Q3

REPORT INFORMATION
  Report Type: 
  Country: None (occurrence: None)
  Receive Date: 20110928
  Receipt Date: 20110922
  Transmission Date: 20111222
  Serious: Yes (Other)
  Sender: FDA-Public Use
  Company Number: PL-ROXANE LABORATORIES, INC.-2011-RO-01330RO

PATIENT
  Age: 79 Year
  Sex: Male

DRUGS (11)
  1. BUPRENORPHINE HCL [Suspect]
     Route: 062
  2. ACETAMINOPHEN [Suspect]
     Indication: CANCER PAIN
  3. BUPRENORPHINE HCL [Suspect]
     Indication: CANCER PAIN
     Route: 062
     Dates: start: 20110101, end: 20110501
  4. VALPROATE SODIUM [Suspect]
     Indication: CONVULSION
     Dosage: 500 MG
  5. IBUPROFEN [Suspect]
     Indication: CANCER PAIN
  6. MORPHINE [Suspect]
     Indication: BREAKTHROUGH PAIN
     Route: 048
  7. BUPRENORPHINE HCL [Suspect]
     Route: 062
  8. GOSERLIN ACETATE [Suspect]
     Indication: HORMONE THERAPY
  9. METOCLOPRAMIDE [Suspect]
     Dosage: 30 MG
  10. OXYCODONE [Suspect]
     Indication: CANCER PAIN
     Dosage: 20 MG
  11. OXYCODONE [Suspect]
     Dosage: 40 MG

REACTIONS (5)
  - DECREASED APPETITE [None]
  - DRUG INEFFECTIVE [None]
  - ASTHENIA [None]
  - SOMNOLENCE [None]
  - CONSTIPATION [None]
